FAERS Safety Report 8341900 (Version 4)
Quarter: 2013Q1

REPORT INFORMATION
  Report Type: Spontaneous
  Country: US (occurrence: US)
  Receive Date: 20120118
  Receipt Date: 20130228
  Transmission Date: 20140127
  Serious: Yes (Other)
  Sender: FDA-Public Use
  Company Number: US-ROCHE-1031110

PATIENT
  Age: 24 Year
  Sex: Female
  Weight: 53.57 kg

DRUGS (10)
  1. ACCUTANE [Suspect]
     Indication: ACNE
     Route: 048
     Dates: start: 20030211
  2. ACCUTANE [Suspect]
     Dosage: 40 MG ALTERNATE WITH 60 MG
     Route: 048
     Dates: start: 20030502
  3. ACCUTANE [Suspect]
     Route: 048
     Dates: start: 20030708, end: 200308
  4. ACCUTANE [Suspect]
     Dosage: DOSE: 20 MG THREE TIMES DAILY
     Route: 048
     Dates: start: 200608, end: 200701
  5. ACCUTANE [Suspect]
     Route: 048
     Dates: start: 20090925
  6. ACCUTANE [Suspect]
     Route: 048
     Dates: start: 20091021
  7. ACCUTANE [Suspect]
     Route: 048
     Dates: start: 20091117
  8. ACCUTANE [Suspect]
     Route: 048
     Dates: start: 20091214
  9. ACCUTANE [Suspect]
     Route: 048
     Dates: start: 20100330
  10. ACCUTANE [Suspect]
     Route: 048
     Dates: start: 20100408

REACTIONS (12)
  - Inflammatory bowel disease [Unknown]
  - Large intestine polyp [Unknown]
  - Injury [Unknown]
  - Crohn^s disease [Unknown]
  - Colitis [Unknown]
  - Irritable bowel syndrome [Unknown]
  - Dry skin [Unknown]
  - Lip dry [Unknown]
  - Rash [Unknown]
  - Platelet count increased [Unknown]
  - Blood cholesterol increased [Unknown]
  - Blood triglycerides increased [Unknown]
